FAERS Safety Report 5798011-7 (Version None)
Quarter: 2008Q3

REPORT INFORMATION
  Report Type: 
  Country: None (occurrence: None)
  Receive Date: 20080702
  Receipt Date: 20070423
  Transmission Date: 20090109
  Serious: Yes (Hospitalization)
  Sender: FDA-Public Use
  Company Number: B0468503A

PATIENT
  Sex: Male

DRUGS (1)
  1. HALFAN [Suspect]
     Indication: MALARIA

REACTIONS (1)
  - ARRHYTHMIA [None]
